FAERS Safety Report 6618597-X (Version None)
Quarter: 2010Q1

REPORT INFORMATION
  Report Type: 
  Country: None (occurrence: None)
  Receive Date: 20100308
  Receipt Date: 20100301
  Transmission Date: 20100710
  Serious: Yes (Hospitalization)
  Sender: FDA-Public Use
  Company Number: AR-WYE-H13406310

PATIENT
  Sex: Male
  Weight: 76 kg

DRUGS (2)
  1. TEMSIROLIMUS [Suspect]
     Indication: RENAL CANCER
     Route: 042
     Dates: start: 20090708, end: 20100114
  2. BEVACIZUMAB [Suspect]
     Indication: RENAL CANCER
     Route: 042
     Dates: start: 20090708, end: 20100114

REACTIONS (1)
  - CHOLECYSTITIS [None]
